FAERS Safety Report 12906662 (Version 1)
Quarter: 2016Q4

REPORT INFORMATION
  Report Type: Spontaneous
  Country: US (occurrence: US)
  Receive Date: 20161101
  Receipt Date: 20161101
  Transmission Date: 20170207
  Serious: Yes (Other)
  Sender: FDA-Public Use
  Company Number: None

PATIENT
  Age: 51 Year
  Sex: Female

DRUGS (1)
  1. HARVONI [Suspect]
     Active Substance: LEDIPASVIR\SOFOSBUVIR
     Indication: HEPATITIS C
     Dosage: 1 DF DOSAFE DAILY ORAL
     Route: 048
     Dates: start: 20160623, end: 20160721

REACTIONS (6)
  - Muscle twitching [None]
  - Swelling face [None]
  - Drooling [None]
  - Dyspnoea [None]
  - Insomnia [None]
  - Rash [None]

NARRATIVE: CASE EVENT DATE: 20160721
